FAERS Safety Report 5805091-9 (Version None)
Quarter: 2008Q3

REPORT INFORMATION
  Report Type: 
  Country: None (occurrence: None)
  Receive Date: 20080709
  Receipt Date: 20080702
  Transmission Date: 20090109
  Serious: Yes (Other)
  Sender: FDA-Public Use
  Company Number: UG-GILEAD-2008-0017173

PATIENT
  Age: 37 Year
  Sex: Female

DRUGS (2)
  1. VIREAD [Suspect]
     Route: 048
     Dates: start: 20030604
  2. COMBIVIR [Concomitant]
     Route: 048
     Dates: start: 20030604

REACTIONS (2)
  - PREGNANCY [None]
  - STILLBIRTH [None]
